FAERS Safety Report 8519008-X (Version None)
Quarter: 2012Q3

REPORT INFORMATION
  Report Type: 
  Country: None (occurrence: None)
  Receive Date: 20120718
  Receipt Date: 20120709
  Transmission Date: 20120928
  Serious: Yes (Death, Other)
  Sender: FDA-Public Use
  Company Number: RU-ACTELION-A-CH2012-68295

PATIENT
  Sex: Female

DRUGS (6)
  1. CEFUROXIME [Concomitant]
  2. TRACLEER [Suspect]
     Indication: PULMONARY ARTERIAL HYPERTENSION
     Dosage: 62.5 MG, BID
     Route: 048
     Dates: start: 20120528, end: 20120618
  3. OMEZ [Concomitant]
  4. WARFARIN SODIUM [Concomitant]
  5. ENOXAPARIN SODIUM [Concomitant]
  6. METIPRED [Concomitant]

REACTIONS (11)
  - NAUSEA [None]
  - VOMITING [None]
  - LIVER FUNCTION TEST ABNORMAL [None]
  - MULTI-ORGAN FAILURE [None]
  - ALANINE AMINOTRANSFERASE INCREASED [None]
  - URINE OUTPUT DECREASED [None]
  - AZOTAEMIA [None]
  - RENAL FAILURE [None]
  - CARDIAC FAILURE [None]
  - OEDEMA PERIPHERAL [None]
  - ABDOMINAL PAIN [None]
